FAERS Safety Report 9326230 (Version 1)
Quarter: 2013Q2

REPORT INFORMATION
  Report Type: Spontaneous
  Country: US (occurrence: US)
  Receive Date: 20130604
  Receipt Date: 20130604
  Transmission Date: 20140414
  Serious: Yes (Hospitalization)
  Sender: FDA-Public Use
  Company Number: US-NOVOPROD-379082

PATIENT
  Age: 14 Month
  Sex: Male

DRUGS (2)
  1. NORDITROPIN FLEXPRO 3.3 MG/ML [Suspect]
     Indication: RENAL FAILURE CHRONIC
     Dosage: UNKNOWN
     Route: 058
     Dates: start: 201302, end: 20130505
  2. NORDITROPIN FLEXPRO 3.3 MG/ML [Suspect]
     Indication: FAILURE TO THRIVE
     Dosage: UNKNOWN
     Route: 058
     Dates: start: 20130520

REACTIONS (6)
  - Nausea [Recovered/Resolved]
  - Vomiting [Recovered/Resolved]
  - Diarrhoea [Recovered/Resolved]
  - Decreased appetite [Recovered/Resolved]
  - Lethargy [Recovered/Resolved]
  - Urticaria [Recovered/Resolved]
